FAERS Safety Report 7898829-0 (Version None)
Quarter: 2011Q4

REPORT INFORMATION
  Report Type: 
  Country: None (occurrence: None)
  Receive Date: 20111107
  Receipt Date: 20111025
  Transmission Date: 20120403
  Serious: Yes (Disabling)
  Sender: FDA-Public Use
  Company Number: US-MYLANLABS-2011S1022314

PATIENT
  Age: 7 Year
  Sex: Male

DRUGS (1)
  1. ETIDRONIC ACID [Suspect]
     Indication: VASCULAR CALCIFICATION
     Dosage: 200 MG/DAY
     Route: 065

REACTIONS (2)
  - BONE DISORDER [None]
  - RICKETS [None]
